FAERS Safety Report 8758699 (Version 1)
Quarter: 2012Q4

REPORT INFORMATION
  Report Type: Spontaneous
  Country: US (occurrence: None)
  Receive Date: 20120828
  Receipt Date: 20120828
  Transmission Date: 20130627
  Serious: No
  Sender: FDA-Public Use
  Company Number: None

PATIENT
  Age: 87 Year
  Sex: Female
  Weight: 63.5 kg

DRUGS (1)
  1. HYDROCORTISONE [Suspect]
     Route: 054
     Dates: start: 20120814, end: 20120816

REACTIONS (8)
  - Anorectal discomfort [None]
  - Abdominal rigidity [None]
  - Flatulence [None]
  - Erythema [None]
  - Headache [None]
  - Tremor [None]
  - Bedridden [None]
  - Malaise [None]
